FAERS Safety Report 9036349 (Version 1)
Quarter: 2013Q1

REPORT INFORMATION
  Report Type: Spontaneous
  Country: US (occurrence: None)
  Receive Date: 20130117
  Receipt Date: 20130117
  Transmission Date: 20140127
  Serious: Yes (Other)
  Sender: FDA-Public Use
  Company Number: None

PATIENT
  Age: 75 Year
  Sex: Female

DRUGS (1)
  1. EXELON [Suspect]
     Indication: DEMENTIA
     Dates: start: 20130110, end: 20130116

REACTIONS (2)
  - Product physical issue [None]
  - Drug ineffective [None]
